FAERS Safety Report 20835967 (Version 1)
Quarter: 2022Q2

REPORT INFORMATION
  Report Type: Spontaneous
  Country: FR (occurrence: FR)
  Receive Date: 20220516
  Receipt Date: 20220516
  Transmission Date: 20220721
  Serious: Yes (Hospitalization)
  Sender: FDA-Public Use
  Company Number: None

PATIENT
  Age: 80 Year
  Sex: Female
  Weight: 51 kg

DRUGS (5)
  1. VIDAZA [Suspect]
     Active Substance: AZACITIDINE
     Indication: Acute myeloid leukaemia
     Route: 058
     Dates: start: 201707
  2. VENETOCLAX [Suspect]
     Active Substance: VENETOCLAX
     Indication: Acute myeloid leukaemia
     Route: 048
     Dates: start: 201811
  3. COMIRNATY [Suspect]
     Active Substance: TOZINAMERAN
     Indication: COVID-19 immunisation
     Dosage: D1+D2+D3+R1?30 MICROGRAMMES/DOSE, DISPERSION A DILUER POUR SOLUTION INJECTABLE VACCIN A ARNM (A NUCL
     Route: 030
     Dates: start: 20210120, end: 20220113
  4. COMIRNATY [Suspect]
     Active Substance: TOZINAMERAN
     Route: 065
  5. COMIRNATY [Suspect]
     Active Substance: TOZINAMERAN
     Route: 065

REACTIONS (1)
  - Vaccination failure [Recovered/Resolved]

NARRATIVE: CASE EVENT DATE: 20220314
